FAERS Safety Report 7731517-X (Version None)
Quarter: 2011Q3

REPORT INFORMATION
  Report Type: 
  Country: None (occurrence: None)
  Receive Date: 20110906
  Receipt Date: 20110830
  Transmission Date: 20111222
  Serious: Yes (Death)
  Sender: FDA-Public Use
  Company Number: CH-PFIZER INC-2011202640

PATIENT
  Age: 59 Year
  Sex: Female

DRUGS (4)
  1. CIPROFLOXACIN [Concomitant]
     Dosage: UNK
  2. FLUCONAZOLE [Concomitant]
     Dosage: UNK
     Dates: start: 20110616
  3. VORICONAZOLE [Suspect]
     Dosage: 400 MG, 2X/DAY
     Dates: start: 20110621
  4. VANCOMYCIN [Concomitant]
     Dosage: UNK

REACTIONS (1)
  - ASPERGILLOSIS [None]
